FAERS Safety Report 7529737-2 (Version None)
Quarter: 2011Q2

REPORT INFORMATION
  Report Type: 
  Country: None (occurrence: None)
  Receive Date: 20110607
  Receipt Date: 20110530
  Transmission Date: 20111010
  Serious: Yes (Other)
  Sender: FDA-Public Use
  Company Number: B0724446A

PATIENT

DRUGS (3)
  1. AUGMENTIN [Suspect]
     Route: 065
  2. LAMICTAL [Suspect]
     Indication: EPILEPSY
     Route: 065
  3. CONVULEX [Concomitant]

REACTIONS (1)
  - CONVULSION [None]
